FAERS Safety Report 13777646 (Version 1)
Quarter: 2017Q3

REPORT INFORMATION
  Report Type: Report from Study
  Country: BR (occurrence: BR)
  Receive Date: 20170721
  Receipt Date: 20170721
  Transmission Date: 20171127
  Serious: Yes (Other)
  Sender: FDA-Public Use
  Company Number: PHHY2017BR098399

PATIENT
  Sex: Male
  Weight: 73 kg

DRUGS (3)
  1. AZORGA [Suspect]
     Active Substance: BRINZOLAMIDE\TIMOLOL MALEATE
     Indication: OCULAR HYPERTENSION
     Dosage: BID IN BOTH EYES
     Route: 065
  2. TRAVATAN [Suspect]
     Active Substance: TRAVOPROST
     Indication: OCULAR HYPERTENSION
     Dosage: 1 DRP, QD (AT NIGHT)
     Route: 047
  3. INSULIN [Concomitant]
     Active Substance: INSULIN NOS
     Indication: DIABETES MELLITUS MANAGEMENT
     Dosage: ONE DOSE OF 46UI IN THE MORNING AND AT NIGHT, FROM 6 TO 10 IU
     Route: 058

REACTIONS (4)
  - Eye discharge [Unknown]
  - Hypertension [Unknown]
  - Visual impairment [Unknown]
  - Cataract [Unknown]
